FAERS Safety Report 8427054-X (Version None)
Quarter: 2012Q2

REPORT INFORMATION
  Report Type: 
  Country: None (occurrence: None)
  Receive Date: 20120611
  Receipt Date: 20120607
  Transmission Date: 20120825
  Serious: Yes (Death)
  Sender: FDA-Public Use
  Company Number: US-ROCHE-1076503

PATIENT
  Sex: Male

DRUGS (3)
  1. XELODA [Suspect]
     Indication: METASTASES TO LIVER
  2. XELODA [Suspect]
     Indication: METASTASES TO LUNG
  3. XELODA [Suspect]
     Indication: OESOPHAGEAL CARCINOMA
     Route: 048
     Dates: start: 20111111

REACTIONS (1)
  - DEATH [None]
